FAERS Safety Report 9925124 (Version 1)
Quarter: 2014Q1

REPORT INFORMATION
  Report Type: Spontaneous
  Country: US (occurrence: None)
  Receive Date: 20140225
  Receipt Date: 20140225
  Transmission Date: 20141002
  Serious: Yes (Other)
  Sender: FDA-Public Use
  Company Number: None

PATIENT
  Age: 49 Year
  Sex: Female

DRUGS (1)
  1. CYMBALTA [Suspect]
     Indication: RHEUMATOID ARTHRITIS
     Route: 048

REACTIONS (9)
  - Disturbance in attention [None]
  - Feeling hot [None]
  - Chills [None]
  - Hyperhidrosis [None]
  - Impaired work ability [None]
  - Thinking abnormal [None]
  - Paraesthesia [None]
  - Visual impairment [None]
  - Back pain [None]
